FAERS Safety Report 19196776 (Version 3)
Quarter: 2022Q1

REPORT INFORMATION
  Report Type: Spontaneous
  Country: US (occurrence: None)
  Receive Date: 20210429
  Receipt Date: 20220104
  Transmission Date: 20220423
  Serious: Yes (Death, Hospitalization, Other)
  Sender: FDA-Public Use
  Company Number: 2021A362565

PATIENT
  Age: 48 Year
  Sex: Female
  Weight: 69.9 kg

DRUGS (21)
  1. PRILOSEC [Suspect]
     Active Substance: OMEPRAZOLE MAGNESIUM
     Indication: Gastrooesophageal reflux disease
     Dosage: FOR VARIOUS DATES AND YEARS
     Route: 048
  2. PRILOSEC [Suspect]
     Active Substance: OMEPRAZOLE MAGNESIUM
     Indication: Gastrooesophageal reflux disease
     Route: 048
     Dates: start: 20140514
  3. PRILOSEC [Suspect]
     Active Substance: OMEPRAZOLE MAGNESIUM
     Indication: Gastrooesophageal reflux disease
     Route: 048
     Dates: start: 20110715
  4. PRILOSEC [Suspect]
     Active Substance: OMEPRAZOLE MAGNESIUM
     Indication: Gastrooesophageal reflux disease
     Dosage: OMEPRAZOLE
     Route: 065
     Dates: start: 2011, end: 2016
  5. PROTONIX [Suspect]
     Active Substance: PANTOPRAZOLE SODIUM
     Indication: Gastrooesophageal reflux disease
     Dosage: FOR VARIOUS DATES AND YEARS
     Route: 065
  6. PROTONIX [Suspect]
     Active Substance: PANTOPRAZOLE SODIUM
     Indication: Gastrooesophageal reflux disease
     Dosage: IV ADMINISTRATION
     Route: 065
     Dates: start: 20110621
  7. HYDRALAZINE [Concomitant]
     Active Substance: HYDRALAZINE HYDROCHLORIDE
  8. RANITIDINE [Concomitant]
     Active Substance: RANITIDINE
  9. POTASSIUM GLUCONATE [Concomitant]
     Active Substance: POTASSIUM GLUCONATE
  10. ATORVASTATIN [Concomitant]
     Active Substance: ATORVASTATIN
  11. CARVEDILOL [Concomitant]
     Active Substance: CARVEDILOL
  12. CLONIDINE [Concomitant]
     Active Substance: CLONIDINE
  13. DIGOXIN [Concomitant]
     Active Substance: DIGOXIN
  14. ENALAPRIL [Concomitant]
     Active Substance: ENALAPRIL
  15. LOSARTAN [Concomitant]
     Active Substance: LOSARTAN
  16. COREG [Concomitant]
     Active Substance: CARVEDILOL
  17. ALDACTONE [Concomitant]
     Active Substance: SPIRONOLACTONE
  18. PEPCID [Concomitant]
     Active Substance: FAMOTIDINE
  19. IMDUR [Concomitant]
     Active Substance: ISOSORBIDE MONONITRATE
  20. METOLAZONE [Concomitant]
     Active Substance: METOLAZONE
  21. CEFUROXIME [Concomitant]
     Active Substance: CEFUROXIME

REACTIONS (10)
  - Cardiomyopathy [Fatal]
  - Hypertension [Fatal]
  - Diabetes mellitus [Fatal]
  - Cardiac failure congestive [Fatal]
  - Acute kidney injury [Unknown]
  - Chronic kidney disease [Unknown]
  - End stage renal disease [Unknown]
  - Hypervolaemia [Unknown]
  - Renal failure [Unknown]
  - Rebound acid hypersecretion [Unknown]

NARRATIVE: CASE EVENT DATE: 20110101
